FAERS Safety Report 22100721 (Version 2)
Quarter: 2024Q4

REPORT INFORMATION
  Report Type: Report from Study
  Country: BR (occurrence: BR)
  Receive Date: 20230316
  Receipt Date: 20241018
  Transmission Date: 20250115
  Serious: Yes (Other)
  Sender: TAKEDA
  Company Number: BR-TAKEDA-BR201910132

PATIENT
  Age: 30 Year
  Sex: Female
  Weight: 49 kg

DRUGS (4)
  1. AGALSIDASE ALFA [Suspect]
     Active Substance: AGALSIDASE ALFA
     Indication: Fabry^s disease
     Dosage: 3 DOSAGE FORM
     Route: 042
  2. AGALSIDASE ALFA [Suspect]
     Active Substance: AGALSIDASE ALFA
     Dosage: UNK
     Route: 042
  3. AGALSIDASE ALFA [Suspect]
     Active Substance: AGALSIDASE ALFA
     Dosage: 8.8 MILLIGRAM, 2/MONTH
     Route: 042
  4. ELAPRASE [Suspect]
     Active Substance: IDURSULFASE
     Indication: Fabry^s disease
     Dosage: 3 DOSAGE FORM, Q2WEEKS
     Route: 042

REACTIONS (21)
  - Skin laceration [Unknown]
  - Off label use [Unknown]
  - Product dose omission issue [Unknown]
  - Contusion [Unknown]
  - Head injury [Unknown]
  - Road traffic accident [Unknown]
  - Foot fracture [Unknown]
  - Inappropriate schedule of product administration [Unknown]
  - Prescription drug used without a prescription [Unknown]
  - Peripheral coldness [Unknown]
  - Vertigo [Unknown]
  - Polyuria [Unknown]
  - Urinary tract infection [Unknown]
  - Hyperacusis [Unknown]
  - Dandruff [Unknown]
  - Dermatitis [Unknown]
  - Thyroid disorder [Unknown]
  - Diarrhoea [Unknown]
  - Abdominal pain [Unknown]
  - Fatigue [Unknown]
  - Headache [Unknown]

NARRATIVE: CASE EVENT DATE: 20231029
